FAERS Safety Report 16202955 (Version 2)
Quarter: 2019Q2

REPORT INFORMATION
  Report Type: Spontaneous
  Country: NL (occurrence: NL)
  Receive Date: 20190416
  Receipt Date: 20190425
  Transmission Date: 20190711
  Serious: Yes (Death, Hospitalization)
  Sender: FDA-Public Use
  Company Number: NL-ACTELION-A-CH2018-174869

PATIENT
  Age: 33 Year
  Sex: Female

DRUGS (2)
  1. VELETRI [Suspect]
     Active Substance: EPOPROSTENOL
     Indication: PULMONARY ARTERIAL HYPERTENSION
     Dosage: 1 DF, QD
     Route: 042
     Dates: start: 2015
  2. VELETRI [Suspect]
     Active Substance: EPOPROSTENOL
     Dosage: 2300 ?G/L, CONT INFUS
     Route: 042
     Dates: start: 201808

REACTIONS (10)
  - Pallor [Recovered/Resolved]
  - Headache [Unknown]
  - Respiratory distress [Recovered/Resolved]
  - Device issue [Recovered/Resolved]
  - Skin discolouration [Recovered/Resolved]
  - Death [Fatal]
  - Hospitalisation [Unknown]
  - Diarrhoea [Unknown]
  - Feeling abnormal [Recovered/Resolved]
  - Dyspnoea [Recovered/Resolved]

NARRATIVE: CASE EVENT DATE: 201808
